FAERS Safety Report 25205458 (Version 1)
Quarter: 2025Q2

REPORT INFORMATION
  Report Type: Spontaneous
  Country: FR (occurrence: FR)
  Receive Date: 20250417
  Receipt Date: 20250417
  Transmission Date: 20250716
  Serious: Yes (Life-Threatening, Other)
  Sender: BAXTER
  Company Number: None

PATIENT
  Age: 67 Year
  Sex: Male
  Weight: 118 kg

DRUGS (9)
  1. IFOSFAMIDE [Suspect]
     Active Substance: IFOSFAMIDE
     Indication: Myxoid liposarcoma
     Dosage: 18 G, EVERY 2 DY (C1, 2 DY,1 TOTAL)
     Route: 042
     Dates: start: 20241001, end: 20241003
  2. IFOSFAMIDE [Suspect]
     Active Substance: IFOSFAMIDE
     Dosage: 18 G, EVERY 2 DY, (1 TOTAL, C2)
     Route: 042
     Dates: start: 20241021, end: 20241023
  3. DOXORUBICIN [Suspect]
     Active Substance: DOXORUBICIN
     Indication: Myxoid liposarcoma
     Route: 042
     Dates: start: 20241001
  4. DOXORUBICIN [Suspect]
     Active Substance: DOXORUBICIN
     Route: 042
     Dates: start: 20241021
  5. ACEBUTOLOL HYDROCHLORIDE [Concomitant]
     Active Substance: ACEBUTOLOL HYDROCHLORIDE
     Route: 065
  6. ATACAND [Concomitant]
     Active Substance: CANDESARTAN CILEXETIL
     Route: 065
  7. KARDEGIC [Concomitant]
     Active Substance: ASPIRIN DL-LYSINE
     Route: 048
  8. METFORMIN HYDROCHLORIDE [Concomitant]
     Active Substance: METFORMIN HYDROCHLORIDE
     Route: 065
  9. DAPAGLIFLOZIN [Concomitant]
     Active Substance: DAPAGLIFLOZIN
     Route: 065

REACTIONS (2)
  - Tubulointerstitial nephritis [Recovered/Resolved with Sequelae]
  - Pancytopenia [Recovering/Resolving]

NARRATIVE: CASE EVENT DATE: 20241031
